FAERS Safety Report 13593026 (Version 1)
Quarter: 2017Q2

REPORT INFORMATION
  Report Type: Spontaneous
  Country: BG (occurrence: BG)
  Receive Date: 20170530
  Receipt Date: 20170530
  Transmission Date: 20170830
  Serious: Yes (Death)
  Sender: FDA-Public Use
  Company Number: PHHY2017BG078573

PATIENT
  Age: 47 Year
  Sex: Female

DRUGS (2)
  1. FURANTHRIL [Concomitant]
     Indication: PRODUCT USED FOR UNKNOWN INDICATION
     Route: 065
  2. ENTRESTO [Suspect]
     Active Substance: SACUBITRIL\VALSARTAN
     Indication: CARDIAC FAILURE CHRONIC
     Dosage: 1 DF, BID
     Route: 065
     Dates: start: 201705

REACTIONS (3)
  - Hypotension [Unknown]
  - Erythema [Unknown]
  - Death [Fatal]

NARRATIVE: CASE EVENT DATE: 20170524
